FAERS Safety Report 5138364-6 (Version None)
Quarter: 2006Q4

REPORT INFORMATION
  Report Type: 
  Country: None (occurrence: None)
  Receive Date: 20061024
  Receipt Date: 20061009
  Transmission Date: 20070319
  Serious: No
  Sender: FDA-Public Use
  Company Number: 2006100029

PATIENT
  Age: 17 Year
  Sex: Female

DRUGS (1)
  1. D-PENCILLAMINE (PENCILLAMINE) [Suspect]
     Indication: HEPATO-LENTICULAR DEGENERATION

REACTIONS (9)
  - ACUTE HEPATIC FAILURE [None]
  - BLOOD ALBUMIN DECREASED [None]
  - BLOOD CREATININE INCREASED [None]
  - CERULOPLASMIN DECREASED [None]
  - HAEMATOCRIT DECREASED [None]
  - HAEMOLYSIS [None]
  - INTERNATIONAL NORMALISED RATIO INCREASED [None]
  - JAUNDICE [None]
  - MENTAL STATUS CHANGES [None]
